FAERS Safety Report 24696710 (Version 2)
Quarter: 2025Q1

REPORT INFORMATION
  Report Type: Spontaneous
  Country: JP (occurrence: JP)
  Receive Date: 20241204
  Receipt Date: 20250110
  Transmission Date: 20250409
  Serious: Yes (Hospitalization, Other)
  Sender: ALEXION PHARMACEUTICALS
  Company Number: JP-ASTRAZENECA-240131761_010520_P_1

PATIENT
  Age: 85 Year

DRUGS (16)
  1. FULVESTRANT [Suspect]
     Active Substance: FULVESTRANT
     Indication: Breast cancer
     Dosage: 500 MILLIGRAM, Q2W
  2. FULVESTRANT [Suspect]
     Active Substance: FULVESTRANT
     Dosage: 500 MILLIGRAM, Q2W
     Route: 030
  3. FULVESTRANT [Suspect]
     Active Substance: FULVESTRANT
     Dosage: 500 MILLIGRAM, Q2W
  4. FULVESTRANT [Suspect]
     Active Substance: FULVESTRANT
     Dosage: 500 MILLIGRAM, Q2W
     Route: 030
  5. FULVESTRANT [Suspect]
     Active Substance: FULVESTRANT
  6. FULVESTRANT [Suspect]
     Active Substance: FULVESTRANT
     Route: 030
  7. FULVESTRANT [Suspect]
     Active Substance: FULVESTRANT
  8. FULVESTRANT [Suspect]
     Active Substance: FULVESTRANT
     Route: 030
  9. TRUQAP [Suspect]
     Active Substance: CAPIVASERTIB
     Indication: Breast cancer
     Dosage: ON A 4-DAY-ON, 3-DAY-OFF SCHEDULE
  10. TRUQAP [Suspect]
     Active Substance: CAPIVASERTIB
     Dosage: ON A 4-DAY-ON, 3-DAY-OFF SCHEDULE
     Route: 048
  11. TRUQAP [Suspect]
     Active Substance: CAPIVASERTIB
     Dosage: ON A 4-DAY-ON, 3-DAY-OFF SCHEDULE
  12. TRUQAP [Suspect]
     Active Substance: CAPIVASERTIB
     Dosage: ON A 4-DAY-ON, 3-DAY-OFF SCHEDULE
     Route: 048
  13. TRUQAP [Suspect]
     Active Substance: CAPIVASERTIB
  14. TRUQAP [Suspect]
     Active Substance: CAPIVASERTIB
     Route: 048
  15. TRUQAP [Suspect]
     Active Substance: CAPIVASERTIB
  16. TRUQAP [Suspect]
     Active Substance: CAPIVASERTIB
     Route: 048

REACTIONS (1)
  - Duodenal perforation [Recovered/Resolved]
